FAERS Safety Report 10867528 (Version 2)
Quarter: 2015Q2

REPORT INFORMATION
  Report Type: Spontaneous
  Country: US (occurrence: US)
  Receive Date: 20150225
  Receipt Date: 20150421
  Transmission Date: 20150821
  Serious: Yes (Death, Other)
  Sender: FDA-Public Use
  Company Number: US-JNJFOC-20150209252

PATIENT
  Sex: Male

DRUGS (3)
  1. SILTUXIMAB [Suspect]
     Active Substance: SILTUXIMAB
     Indication: CYTOKINE RELEASE SYNDROME
     Route: 042
  2. TOCILIZUMAB [Suspect]
     Active Substance: TOCILIZUMAB
     Indication: CYTOKINE RELEASE SYNDROME
     Route: 065
  3. CYCLOPHOSPHAMIDE. [Suspect]
     Active Substance: CYCLOPHOSPHAMIDE
     Indication: CYTOKINE RELEASE SYNDROME
     Route: 065

REACTIONS (6)
  - Off label use [Unknown]
  - Relapsing fever [Unknown]
  - Stenotrophomonas test positive [Unknown]
  - Hypotension [Fatal]
  - Hypoxia [Fatal]
  - Lung infiltration [Unknown]
